FAERS Safety Report 5232320-5 (Version None)
Quarter: 2007Q1

REPORT INFORMATION
  Report Type: 
  Country: None (occurrence: None)
  Receive Date: 20070207
  Receipt Date: 20070201
  Transmission Date: 20070707
  Serious: Yes (Other)
  Sender: FDA-Public Use
  Company Number: US-AVENTIS-200618991US

PATIENT
  Sex: Female
  Weight: 25 kg

DRUGS (3)
  1. DDVAP [Suspect]
     Dates: start: 20060927
  2. DDVAP [Suspect]
     Dosage: DOSE: 0.2MG 2 TABLETS
  3. DDVAP [Suspect]
     Dates: start: 20061017, end: 20061018

REACTIONS (8)
  - ABDOMINAL PAIN UPPER [None]
  - CRYING [None]
  - DEPRESSION [None]
  - HEADACHE [None]
  - PANIC ATTACK [None]
  - PHARYNGOLARYNGEAL PAIN [None]
  - PSYCHOTIC DISORDER [None]
  - TEARFULNESS [None]
